FAERS Safety Report 8921014 (Version 4)
Quarter: 2015Q2

REPORT INFORMATION
  Report Type: Spontaneous
  Country: US (occurrence: US)
  Receive Date: 20121121
  Receipt Date: 20150428
  Transmission Date: 20150821
  Serious: Yes (Hospitalization, Other)
  Sender: FDA-Public Use
  Company Number: US-ELI_LILLY_AND_COMPANY-US201211003817

PATIENT
  Age: 27 Year
  Sex: Male

DRUGS (4)
  1. NAPROXEN. [Concomitant]
     Active Substance: NAPROXEN
     Dosage: 500 MG, BID
     Route: 065
  2. CYMBALTA [Suspect]
     Active Substance: DULOXETINE HYDROCHLORIDE
     Indication: BACK PAIN
     Dosage: 30 MG, QD
     Route: 048
     Dates: start: 20120907, end: 20121007
  3. CYMBALTA [Suspect]
     Active Substance: DULOXETINE HYDROCHLORIDE
     Indication: FIBROMYALGIA
     Dosage: 60 MG, DAILY
     Dates: start: 20121008, end: 20121011
  4. RISPERIDONE. [Concomitant]
     Active Substance: RISPERIDONE

REACTIONS (8)
  - Psychotic disorder [Unknown]
  - Self injurious behaviour [Unknown]
  - Feeling abnormal [Unknown]
  - Intentional product misuse [Unknown]
  - Suicidal ideation [Unknown]
  - Hallucination [Unknown]
  - Paraesthesia [Unknown]
  - Drug withdrawal syndrome [Unknown]

NARRATIVE: CASE EVENT DATE: 201211
